FAERS Safety Report 12597723 (Version 1)
Quarter: 2016Q3

REPORT INFORMATION
  Report Type: Spontaneous
  Country: US (occurrence: None)
  Receive Date: 20160726
  Receipt Date: 20160726
  Transmission Date: 20161109
  Serious: Yes (Disabling)
  Sender: FDA-Public Use
  Company Number: None

PATIENT
  Age: 64 Year
  Sex: Female
  Weight: 81.19 kg

DRUGS (6)
  1. METFORMIN [Concomitant]
     Active Substance: METFORMIN HYDROCHLORIDE
  2. BYDUREON [Suspect]
     Active Substance: EXENATIDE
     Indication: DIABETES MELLITUS
     Dosage: 4 INJECTION PENS ONCE A WEEK INJECTION
     Dates: start: 20151204, end: 20151211
  3. QUINAPRIL. [Concomitant]
     Active Substance: QUINAPRIL
  4. ASPIRIN. [Concomitant]
     Active Substance: ASPIRIN
  5. HYDROCHLOROT [Concomitant]
     Active Substance: HYDROCHLOROTHIAZIDE
  6. FERROUS [Concomitant]
     Active Substance: IRON

REACTIONS (9)
  - Blood glucose increased [None]
  - Abdominal discomfort [None]
  - Headache [None]
  - Injection site pain [None]
  - Injection site mass [None]
  - Gastrooesophageal reflux disease [None]
  - Hypoaesthesia oral [None]
  - Dry mouth [None]
  - Asthenia [None]

NARRATIVE: CASE EVENT DATE: 20151211
